FAERS Safety Report 9188810 (Version 1)
Quarter: 2013Q1

REPORT INFORMATION
  Report Type: Spontaneous
  Country: CN (occurrence: CN)
  Receive Date: 20130326
  Receipt Date: 20130326
  Transmission Date: 20140127
  Serious: Yes (Other)
  Sender: FDA-Public Use
  Company Number: CN-ASTRAZENECA-2013SE17206

PATIENT
  Age: 55 Year
  Sex: Male

DRUGS (2)
  1. PLENDIL [Suspect]
     Indication: HYPERTENSION
     Route: 048
  2. PLENDIL [Suspect]
     Indication: HYPERTENSION
     Route: 048

REACTIONS (3)
  - Blood pressure increased [Recovered/Resolved]
  - Cerebrovascular accident [Recovering/Resolving]
  - Drug ineffective [Unknown]
